FAERS Safety Report 8790573 (Version 1)
Quarter: 2012Q4

REPORT INFORMATION
  Report Type: Spontaneous
  Country: US (occurrence: None)
  Receive Date: 20120912
  Receipt Date: 20120912
  Transmission Date: 20130627
  Serious: No
  Sender: FDA-Public Use
  Company Number: None

PATIENT
  Age: 41 Year
  Sex: Female
  Weight: 54.43 kg

DRUGS (1)
  1. LOESTRIN 24 FE [Suspect]
     Indication: BIRTH CONTROL
     Dosage: 1 tablet daily monthly po
     Route: 048
     Dates: start: 201204, end: 201207

REACTIONS (8)
  - Paranoia [None]
  - Anxiety [None]
  - Night sweats [None]
  - Blood glucose increased [None]
  - Hypoglycaemia [None]
  - Thyroxine increased [None]
  - Insomnia [None]
  - Diarrhoea [None]
